FAERS Safety Report 15243100 (Version 2)
Quarter: 2019Q1

REPORT INFORMATION
  Report Type: Spontaneous
  Country: CA (occurrence: CA)
  Receive Date: 20180806
  Receipt Date: 20190108
  Transmission Date: 20190417
  Serious: Yes (Hospitalization, Other)
  Sender: FDA-Public Use
  Company Number: CA-CELLTRION INC.-2018CA021139

PATIENT

DRUGS (4)
  1. METHOTREXATE. [Concomitant]
     Active Substance: METHOTREXATE
     Dosage: UNK
     Dates: start: 201802
  2. INFLECTRA [Suspect]
     Active Substance: INFLIXIMAB-DYYB
     Dosage: 375 MG, CYCLIC WEEK 0,2,6 THEN EVERY 8 WEEKS;
     Route: 042
     Dates: start: 20180604
  3. INFLECTRA [Suspect]
     Active Substance: INFLIXIMAB-DYYB
     Dosage: 375 MG, CYCLIC WEEK 0,2,6 THEN EVERY 8 WEEKS;
     Route: 042
     Dates: start: 20180620
  4. INFLECTRA [Suspect]
     Active Substance: INFLIXIMAB-DYYB
     Indication: CROHN^S DISEASE
     Dosage: 375 MG, CYCLIC WEEK 0,2,6 THEN EVERY 8 WEEKS;
     Route: 042
     Dates: start: 20180604

REACTIONS (7)
  - Arthralgia [Unknown]
  - Peripheral swelling [Not Recovered/Not Resolved]
  - Renal cyst [Unknown]
  - Vomiting [Unknown]
  - White blood cell count decreased [Unknown]
  - Pain in extremity [Unknown]
  - Back pain [Not Recovered/Not Resolved]

NARRATIVE: CASE EVENT DATE: 201806
